FAERS Safety Report 22171140 (Version 1)
Quarter: 2023Q2

REPORT INFORMATION
  Report Type: Spontaneous
  Country: PT (occurrence: PT)
  Receive Date: 20230404
  Receipt Date: 20230404
  Transmission Date: 20230721
  Serious: Yes (Other)
  Sender: FDA-Public Use
  Company Number: DE-PFIZER INC-PV202300051783

PATIENT
  Sex: Male

DRUGS (4)
  1. TAMOXIFEN [Suspect]
     Active Substance: TAMOXIFEN
     Indication: Malignant melanoma
     Dosage: UNK
     Route: 065
  2. CISPLATIN [Suspect]
     Active Substance: CISPLATIN
     Indication: Malignant melanoma
     Dosage: UNK
     Route: 065
  3. CARMUSTINE [Suspect]
     Active Substance: CARMUSTINE
     Indication: Malignant melanoma
     Dosage: UNK
     Route: 065
  4. DACARBAZINE [Suspect]
     Active Substance: DACARBAZINE
     Indication: Malignant melanoma
     Dosage: UNK
     Route: 065

REACTIONS (1)
  - Langerhans^ cell histiocytosis [Unknown]
